FAERS Safety Report 6196054-5 (Version None)
Quarter: 2009Q2

REPORT INFORMATION
  Report Type: 
  Country: None (occurrence: None)
  Receive Date: 20090520
  Receipt Date: 20090508
  Transmission Date: 20091009
  Serious: Yes (Other)
  Sender: FDA-Public Use
  Company Number: GB-PFIZER INC-2009172382

PATIENT

DRUGS (33)
  1. CLINDAMYCIN HCL [Suspect]
     Indication: SINUS DISORDER
     Dosage: 150 MG, 2X/DAY
     Dates: start: 20070801
  2. AZITHROMYCIN [Suspect]
     Indication: SINUS DISORDER
     Dosage: 500 MG, 1X/DAY
     Dates: start: 20061019
  3. CIPROFLOXACIN HCL [Suspect]
     Indication: SINUS DISORDER
     Dosage: 250 MG, UNK
     Dates: start: 20060927
  4. CIPROFLOXACIN HCL [Suspect]
     Dosage: 500 MG, UNK
     Dates: start: 20080915
  5. PREDNISOLONE AND PREDNISOLONE STEAGLATE [Suspect]
     Indication: SINUS DISORDER
     Dosage: 5 MG, 6 TABLETS 1X/DAY
     Dates: start: 20070215
  6. PREDNISOLONE AND PREDNISOLONE STEAGLATE [Suspect]
     Dosage: 5 MG, 1X/DAY
     Dates: start: 20090305
  7. BUDESONIDE [Suspect]
     Indication: SINUS DISORDER
     Dosage: 200 UG, 1 PUFF 2X/DAY
     Route: 055
     Dates: start: 20080611
  8. METRONIDAZOLE AND METRONIDAZOLE BENZOATE AND METRONIDAZOLE HYDROCHLORI [Suspect]
     Indication: SINUS DISORDER
     Dosage: 400 MG, 3X/DAY
     Dates: start: 20080708
  9. METRONIDAZOLE AND METRONIDAZOLE BENZOATE AND METRONIDAZOLE HYDROCHLORI [Suspect]
     Dosage: 500 MG, 2X/DAY
     Dates: start: 20090330
  10. PILOCARPINE HCL [Suspect]
     Indication: SINUS DISORDER
     Dosage: 5 MG, 2 TABLETS 3X/DAY
     Dates: start: 20080804
  11. PILOCARPINE HCL [Suspect]
     Dosage: 5 MG, TWO TABLETS 3X/DAY
     Dates: start: 20081111
  12. CLARITHROMYCIN [Suspect]
     Indication: SINUS DISORDER
     Dosage: 250 MG, 2X/DAY
     Dates: start: 20060725
  13. CLARITHROMYCIN [Suspect]
     Dosage: 500 MG, 2X/DAY
     Dates: start: 20080402
  14. CLARITHROMYCIN [Suspect]
     Dosage: 250 MG, 1X/DAY
     Dates: start: 20090305
  15. FLOXACILLIN SODIUM [Suspect]
     Indication: SINUS DISORDER
     Dosage: 500 MG, 4X/DAY
     Dates: start: 20060927
  16. FLOXACILLIN SODIUM [Suspect]
     Dosage: 500 MG, 4X/DAY
     Dates: start: 20070801
  17. FLUTICASONE PROPIONATE [Suspect]
     Indication: SINUS DISORDER
     Dosage: 400 UG, 2X/DAY
     Route: 045
     Dates: start: 20061004
  18. MEBEVERINE [Suspect]
     Indication: SINUS DISORDER
     Dosage: 135 MG, ONE TABLET 3X/DAY
     Dates: start: 20061116
  19. MEBEVERINE [Suspect]
     Dosage: 135 MG, 3X/DAY
     Dates: start: 20081202
  20. BETAMETHASONE SODIUM PHOSPHATE [Suspect]
     Indication: SINUS DISORDER
     Dosage: 0.1 %, 2 DROPS IN BOTH NOSTRILS 2X/DAY
     Route: 045
     Dates: start: 20061120
  21. BETAMETHASONE SODIUM PHOSPHATE [Suspect]
     Dosage: 0.1 %, 2 DROPS 2X/DAY
     Dates: start: 20090323
  22. CO-AMOXICLAV [Suspect]
     Indication: SINUS DISORDER
     Dosage: 500/125, ONE THREE TIMES DAILY
     Dates: start: 20070213
  23. CO-AMOXICLAV [Suspect]
     Dosage: 250/125 DISPERSIBLE TABLET
     Dates: start: 20090330
  24. FLIXONASE [Suspect]
     Indication: SINUS DISORDER
     Dosage: 400 UG, 6 DROPS IN LEFT AND RIGHT NOSTRIL 2X/DAY
     Route: 045
     Dates: start: 20070215
  25. FLIXONASE [Suspect]
     Dosage: 400 UG, 2X/DAY
     Dates: start: 20080206
  26. MOMETASONE FUROATE [Suspect]
     Indication: SINUS DISORDER
     Dosage: 50 UG, 2 SPRAYS IN EACH NOSTRIL UNK
     Route: 045
     Dates: start: 20070904
  27. MOMETASONE FUROATE [Suspect]
     Dosage: 50 UG, 2 SPRAYS INTO BOTH NOSTRILS 2X/DAY
     Route: 045
     Dates: start: 20080402
  28. TRI-ADCORTYL [Suspect]
     Indication: SINUS DISORDER
     Dosage: 10 G, 2X/DAY
     Dates: start: 20070924
  29. BETNESOL-N [Suspect]
     Indication: SINUS DISORDER
     Dosage: 2 DROPS ON LEFT SIDE, UNK
     Dates: start: 20071024
  30. BETNESOL-N [Suspect]
     Dosage: 2 DROPS, 2X DAILY
     Dates: start: 20080912
  31. AMOXICILLIN [Suspect]
     Indication: SINUS DISORDER
     Dosage: 250 MG, 3X/DAY
     Dates: start: 20080226
  32. EPHEDRINE HYDROCHLORIDE [Suspect]
     Indication: SINUS DISORDER
     Dosage: 0.5 %, 2-3 DROPS IN RIGHT NOSTRIL 2X/DAY
     Route: 045
     Dates: start: 20080402
  33. MICONAZOLE [Suspect]
     Indication: SINUS DISORDER
     Dosage: 24 MG/ML, 3X/DAY
     Route: 048
     Dates: start: 20080718

REACTIONS (10)
  - AGEUSIA [None]
  - ANOSMIA [None]
  - BREATH ODOUR [None]
  - DRY EYE [None]
  - DYSPEPSIA [None]
  - FACIAL BONES FRACTURE [None]
  - FALL [None]
  - FLATULENCE [None]
  - LOSS OF CONSCIOUSNESS [None]
  - VISION BLURRED [None]
